FAERS Safety Report 21208414 (Version 2)
Quarter: 2022Q3

REPORT INFORMATION
  Report Type: Report from Study
  Country: US (occurrence: US)
  Receive Date: 20220812
  Receipt Date: 20220907
  Transmission Date: 20221026
  Serious: Yes (Other)
  Sender: FDA-Public Use
  Company Number: US-BRISTOL-MYERS SQUIBB COMPANY-2022-087545

PATIENT
  Age: 55 Year
  Sex: Female
  Weight: 77.11 kg

DRUGS (17)
  1. REVLIMID [Suspect]
     Active Substance: LENALIDOMIDE
     Indication: Plasma cell myeloma
     Dosage: 1-21 DAYS, 7 DAYS OFF
     Route: 048
     Dates: start: 202009
  2. ASPIRIN TEVA [Concomitant]
     Indication: Product used for unknown indication
     Route: 065
  3. DEXAVET [DEXAMETHASONE] [Concomitant]
     Indication: Product used for unknown indication
     Route: 065
  4. ZOLEDRONIC ACID/ZENTIVA [Concomitant]
     Indication: Product used for unknown indication
     Route: 065
  5. VELCADE [Concomitant]
     Active Substance: BORTEZOMIB
     Indication: Product used for unknown indication
     Route: 065
  6. COLESTYRAMINE DCI [Concomitant]
     Indication: Product used for unknown indication
     Route: 065
  7. B-50 COMPLEX [VITAMIN B COMPLEX] [Concomitant]
     Indication: Product used for unknown indication
     Route: 065
  8. VOLTAREN [Concomitant]
     Active Substance: DICLOFENAC SODIUM
     Indication: Product used for unknown indication
     Route: 065
  9. DICODID [HYDROCODONE HYDROCHLORIDE] [Concomitant]
     Indication: Product used for unknown indication
     Route: 065
  10. IMODIUM [Concomitant]
     Active Substance: LOPERAMIDE HYDROCHLORIDE
     Indication: Product used for unknown indication
     Route: 065
  11. CHOLECALCIFEROL [Concomitant]
     Active Substance: CHOLECALCIFEROL
     Indication: Product used for unknown indication
     Route: 065
  12. DULOXETINE GH [Concomitant]
     Indication: Product used for unknown indication
     Route: 065
  13. PRILOSEC [Concomitant]
     Active Substance: OMEPRAZOLE MAGNESIUM
     Indication: Product used for unknown indication
     Route: 065
  14. VALACYCLOVIR [Concomitant]
     Active Substance: VALACYCLOVIR HYDROCHLORIDE
     Indication: Product used for unknown indication
     Route: 065
  15. HYFLEX [MELOXICAM] [Concomitant]
     Indication: Product used for unknown indication
     Route: 065
  16. ZOFRON [ONDANSETRON] [Concomitant]
     Indication: Product used for unknown indication
     Route: 065
  17. CYCLOBENZAPRINE [Concomitant]
     Active Substance: CYCLOBENZAPRINE
     Indication: Product used for unknown indication
     Route: 065

REACTIONS (4)
  - Diarrhoea [Unknown]
  - Lactose intolerance [Unknown]
  - Dyspepsia [Unknown]
  - Abdominal discomfort [Unknown]
